FAERS Safety Report 24437585 (Version 1)
Quarter: 2024Q4

REPORT INFORMATION
  Report Type: Spontaneous
  Country: US (occurrence: None)
  Receive Date: 20241011
  Receipt Date: 20241011
  Transmission Date: 20250114
  Serious: Yes (Other)
  Sender: Public
  Company Number: None

PATIENT
  Age: 36 Year
  Sex: Female
  Weight: 48.6 kg

DRUGS (1)
  1. SULFAMETHOXAZOLE\TRIMETHOPRIM [Suspect]
     Active Substance: SULFAMETHOXAZOLE\TRIMETHOPRIM
     Indication: Nail infection
     Dosage: OTHER QUANTITY : 10 TABLET(S);?FREQUENCY : EVERY 12 HOURS;?
     Route: 048
     Dates: start: 20241008, end: 20241011

REACTIONS (14)
  - Nausea [None]
  - Middle insomnia [None]
  - Headache [None]
  - Pallor [None]
  - Hyperhidrosis [None]
  - Dyspnoea [None]
  - Chest pain [None]
  - Anxiety [None]
  - Asthenia [None]
  - Fatigue [None]
  - Brain fog [None]
  - Panic attack [None]
  - Palpitations [None]
  - Dyspepsia [None]

NARRATIVE: CASE EVENT DATE: 20241009
